FAERS Safety Report 6808872-8 (Version None)
Quarter: 2010Q2

REPORT INFORMATION
  Report Type: 
  Country: None (occurrence: None)
  Receive Date: 20100630
  Receipt Date: 20091027
  Transmission Date: 20101027
  Serious: No
  Sender: FDA-Public Use
  Company Number: US-PFIZER INC-2009270767

PATIENT
  Age: 19 Year
  Sex: Male

DRUGS (1)
  1. ZYVOX [Suspect]
     Indication: STAPHYLOCOCCAL INFECTION
     Dosage: 600 MG, UNK
     Dates: start: 20090101, end: 20090901

REACTIONS (2)
  - HYPOAESTHESIA ORAL [None]
  - TONGUE DISCOLOURATION [None]
